FAERS Safety Report 9306252 (Version 1)
Quarter: 2013Q2

REPORT INFORMATION
  Report Type: Report from Study
  Country: US (occurrence: US)
  Receive Date: 20130523
  Receipt Date: 20130523
  Transmission Date: 20140414
  Serious: Yes (Other)
  Sender: FDA-Public Use
  Company Number: US-ROCHE-1223550

PATIENT
  Age: 77 Year
  Sex: Male
  Weight: 74.6 kg

DRUGS (4)
  1. VEMURAFENIB [Suspect]
     Indication: METASTATIC MALIGNANT MELANOMA
     Route: 048
     Dates: start: 20130128, end: 20130425
  2. VEMURAFENIB [Suspect]
     Dosage: THERAPY RESUMED
     Route: 048
  3. GDC-0973 [Suspect]
     Indication: CHRONIC MYELOMONOCYTIC LEUKAEMIA
     Route: 048
     Dates: start: 20130128, end: 20130425
  4. GDC-0973 [Suspect]
     Dosage: DOSE REDUCED
     Route: 048
     Dates: start: 20130426

REACTIONS (1)
  - Eye disorder [Unknown]
